FAERS Safety Report 7166042-0 (Version None)
Quarter: 2010Q4

REPORT INFORMATION
  Report Type: 
  Country: None (occurrence: None)
  Receive Date: 20101216
  Receipt Date: 20101208
  Transmission Date: 20110411
  Serious: No
  Sender: FDA-Public Use
  Company Number: US-BIOGENIDEC-2010BI043362

PATIENT
  Age: 44 Year
  Sex: Male

DRUGS (4)
  1. TYSABRI [Suspect]
     Indication: MULTIPLE SCLEROSIS
     Route: 042
     Dates: start: 20100802
  2. BENADRYL [Concomitant]
     Indication: CHILLS
  3. BENADRYL [Concomitant]
     Indication: MUSCLE CONTRACTIONS INVOLUNTARY
  4. BENADRYL [Concomitant]
     Indication: PYREXIA

REACTIONS (3)
  - CHILLS [None]
  - MUSCLE CONTRACTIONS INVOLUNTARY [None]
  - PYREXIA [None]
